FAERS Safety Report 15623463 (Version 4)
Quarter: 2019Q2

REPORT INFORMATION
  Report Type: Spontaneous
  Country: US (occurrence: US)
  Receive Date: 20181115
  Receipt Date: 20190430
  Transmission Date: 20190711
  Serious: No
  Sender: FDA-Public Use
  Company Number: US-PFIZER INC-2018472563

PATIENT
  Age: 62 Year
  Sex: Female

DRUGS (4)
  1. VALACYCLOVIR HCL [Suspect]
     Active Substance: VALACYCLOVIR HYDROCHLORIDE
     Dosage: UNK
  2. CARISOPRODOL. [Suspect]
     Active Substance: CARISOPRODOL
     Dosage: UNK
  3. LISINOPRIL. [Suspect]
     Active Substance: LISINOPRIL
     Dosage: UNK
  4. VENLAFAXINE HCL [Suspect]
     Active Substance: VENLAFAXINE HYDROCHLORIDE
     Dosage: UNK

REACTIONS (2)
  - Drug hypersensitivity [Unknown]
  - Behaviour disorder [Unknown]
